FAERS Safety Report 5670930-1 (Version None)
Quarter: 2008Q1

REPORT INFORMATION
  Report Type: 
  Country: None (occurrence: None)
  Receive Date: 20080318
  Receipt Date: 20080317
  Transmission Date: 20080703
  Serious: Yes (Other)
  Sender: FDA-Public Use
  Company Number: B0512571A

PATIENT
  Age: 64 Year
  Sex: Male

DRUGS (1)
  1. ALKERAN [Suspect]
     Indication: STEM CELL TRANSPLANT
     Dosage: 140MGM2 PER DAY
     Route: 042

REACTIONS (2)
  - FEBRILE NEUTROPENIA [None]
  - MUCOUS MEMBRANE DISORDER [None]
